FAERS Safety Report 10396786 (Version 1)
Quarter: 2014Q3

REPORT INFORMATION
  Report Type: Spontaneous
  Country: GB (occurrence: GB)
  Receive Date: 20140820
  Receipt Date: 20140820
  Transmission Date: 20150326
  Serious: Yes (Other)
  Sender: FDA-Public Use
  Company Number: PHHY2014GB099293

PATIENT
  Age: 6 Year
  Sex: Male
  Weight: 23.58 kg

DRUGS (4)
  1. LACTULOSE. [Concomitant]
     Active Substance: LACTULOSE
  2. PIRITEZE [Suspect]
     Active Substance: CETIRIZINE HYDROCHLORIDE
     Indication: HYPERSENSITIVITY
     Dosage: UNK UKN, UNK, 5MG , 5ML SPOONFUL ONCE (TWO DOSES TO BE GIVEN BUT ONLY ONE DOSE TAKEN
     Route: 048
     Dates: start: 20140730, end: 20140730
  3. PREDNISOLONE SODIUM PHOSPHATE [Concomitant]
     Active Substance: PREDNISOLONE SODIUM PHOSPHATE
     Dosage: UNK UKN, UNK
  4. CHLORPHENAMINE [Suspect]
     Active Substance: CHLORPHENIRAMINE MALEATE
     Indication: HYPERSENSITIVITY
     Dosage: 2 MG, QID, 5ML (2MG) FOUR TIMES A DAY
     Route: 048
     Dates: start: 20140721, end: 20140725

REACTIONS (9)
  - Urinary incontinence [Not Recovered/Not Resolved]
  - Dyspnoea [Recovered/Resolved]
  - Pain in extremity [Recovered/Resolved]
  - Headache [Not Recovered/Not Resolved]
  - Flatulence [Recovered/Resolved]
  - Hallucination [Recovered/Resolved]
  - Restlessness [Recovered/Resolved]
  - Visual impairment [None]
  - Malaise [Unknown]

NARRATIVE: CASE EVENT DATE: 20140721
